FAERS Safety Report 8617196-8 (Version None)
Quarter: 2012Q3

REPORT INFORMATION
  Report Type: 
  Country: None (occurrence: None)
  Receive Date: 20120823
  Receipt Date: 20120814
  Transmission Date: 20120928
  Serious: Yes (Hospitalization, Other)
  Sender: FDA-Public Use
  Company Number: US-ASTRAZENECA-2009UW04200

PATIENT
  Age: 65 Year
  Sex: Male

DRUGS (3)
  1. NEXIUM [Suspect]
     Route: 048
  2. INSULIN [Suspect]
     Route: 065
  3. CRESTOR [Suspect]
     Route: 048

REACTIONS (5)
  - CARDIAC DISORDER [None]
  - NEOPLASM MALIGNANT [None]
  - MYOCARDIAL INFARCTION [None]
  - CEREBROVASCULAR ACCIDENT [None]
  - LUNG NEOPLASM MALIGNANT [None]
